FAERS Safety Report 20751231 (Version 1)
Quarter: 2022Q2

REPORT INFORMATION
  Report Type: Spontaneous
  Country: US (occurrence: US)
  Receive Date: 20220426
  Receipt Date: 20220426
  Transmission Date: 20220721
  Serious: Yes (Other)
  Sender: FDA-Public Use
  Company Number: US-BRISTOL-MYERS SQUIBB COMPANY-2022-023475

PATIENT
  Age: 74 Year
  Sex: Female

DRUGS (10)
  1. ELIQUIS [Suspect]
     Active Substance: APIXABAN
     Route: 048
  2. RETINOL [Concomitant]
     Active Substance: RETINOL
  3. LIPITOR [Concomitant]
     Active Substance: ATORVASTATIN CALCIUM
  4. COBAMAMIDE [Concomitant]
     Active Substance: COBAMAMIDE
  5. DICLOFENAC [Concomitant]
     Active Substance: DICLOFENAC
  6. HYDROCORTISONE [Concomitant]
     Active Substance: HYDROCORTISONE
  7. MIRTAZAPINE ORIFARM [Concomitant]
  8. REQUIP [Concomitant]
     Active Substance: ROPINIROLE HYDROCHLORIDE
  9. NATURAL VITAMIN C [Concomitant]
  10. VITAMIN E [Concomitant]
     Active Substance: .ALPHA.-TOCOPHEROL

REACTIONS (1)
  - Cardiovascular disorder [Unknown]

NARRATIVE: CASE EVENT DATE: 20220101
